FAERS Safety Report 7998983-6 (Version None)
Quarter: 2011Q4

REPORT INFORMATION
  Report Type: 
  Country: None (occurrence: None)
  Receive Date: 20111221
  Receipt Date: 20111212
  Transmission Date: 20120403
  Serious: Yes (Hospitalization)
  Sender: FDA-Public Use
  Company Number: US-ABBOTT-11P-163-0882734-00

PATIENT
  Sex: Male
  Weight: 60.382 kg

DRUGS (1)
  1. HUMIRA [Suspect]
     Indication: CROHN'S DISEASE
     Dates: start: 20111101

REACTIONS (5)
  - VESICAL FISTULA [None]
  - CROHN'S DISEASE [None]
  - COLITIS [None]
  - ENTERITIS [None]
  - WOUND DEHISCENCE [None]
